FAERS Safety Report 4706934-2 (Version None)
Quarter: 2005Q3

REPORT INFORMATION
  Report Type: 
  Country: None (occurrence: None)
  Receive Date: 20050706
  Receipt Date: 20050616
  Transmission Date: 20060218
  Serious: Yes (Other)
  Sender: FDA-Public Use
  Company Number: 200512036FR

PATIENT
  Age: 19 Year
  Sex: Female

DRUGS (1)
  1. KETEK [Suspect]
     Route: 048
     Dates: start: 20050101, end: 20050101

REACTIONS (7)
  - DIFFICULTY IN WALKING [None]
  - DIZZINESS [None]
  - FORMICATION [None]
  - GAIT DISTURBANCE [None]
  - MUSCLE CONTRACTURE [None]
  - MUSCLE SPASMS [None]
  - MUSCULOSKELETAL STIFFNESS [None]
